FAERS Safety Report 18410728 (Version 1)
Quarter: 2020Q4

REPORT INFORMATION
  Report Type: Spontaneous
  Country: US (occurrence: US)
  Receive Date: 20201021
  Receipt Date: 20201021
  Transmission Date: 20210114
  Serious: Yes (Hospitalization, Other)
  Sender: FDA-Public Use
  Company Number: US-ALXN-A202015259

PATIENT
  Sex: Male

DRUGS (1)
  1. SOLIRIS [Suspect]
     Active Substance: ECULIZUMAB
     Indication: MYASTHENIA GRAVIS
     Dosage: UNK
     Route: 042

REACTIONS (5)
  - Scoliosis [Unknown]
  - Dysarthria [Unknown]
  - CSF volume increased [Recovering/Resolving]
  - Intracranial pressure increased [Recovering/Resolving]
  - Headache [Recovered/Resolved]
